FAERS Safety Report 7785028-6 (Version None)
Quarter: 2011Q3

REPORT INFORMATION
  Report Type: 
  Country: None (occurrence: None)
  Receive Date: 20110929
  Receipt Date: 20110916
  Transmission Date: 20111222
  Serious: Yes (Hospitalization)
  Sender: FDA-Public Use
  Company Number: CH-RANBAXY-2011RR-46692

PATIENT
  Sex: Female

DRUGS (7)
  1. GABAPENTIN [Concomitant]
     Indication: PRODUCT USED FOR UNKNOWN INDICATION
     Dosage: UNK
     Route: 065
  2. SITAGLIPIN [Concomitant]
     Indication: TYPE 2 DIABETES MELLITUS
     Dosage: 50 MG, UNK
     Route: 065
  3. METOPROLOL TARTRATE [Concomitant]
     Indication: PRODUCT USED FOR UNKNOWN INDICATION
     Dosage: UNK
     Route: 065
  4. GLICLAZIDE [Concomitant]
     Indication: TYPE 2 DIABETES MELLITUS
     Dosage: UNK
     Route: 065
  5. OLMESARTAN MEDOXOMIL [Concomitant]
     Indication: PRODUCT USED FOR UNKNOWN INDICATION
     Dosage: UNK
     Route: 065
  6. METFORMIN HCL [Suspect]
     Indication: TYPE 2 DIABETES MELLITUS
     Dosage: 500 MG/DAY
     Route: 048
  7. CLOPIDOGREL [Concomitant]
     Indication: PRODUCT USED FOR UNKNOWN INDICATION
     Dosage: UNK
     Route: 065

REACTIONS (1)
  - FAECAL INCONTINENCE [None]
